FAERS Safety Report 8460085-2 (Version None)
Quarter: 2012Q2

REPORT INFORMATION
  Report Type: 
  Country: None (occurrence: None)
  Receive Date: 20120622
  Receipt Date: 20120611
  Transmission Date: 20120825
  Serious: No
  Sender: FDA-Public Use
  Company Number: US-ASTRAZENECA-2011SE50774

PATIENT
  Age: 62 Year
  Sex: Female

DRUGS (1)
  1. VIMOVO [Suspect]
     Route: 048

REACTIONS (4)
  - MALAISE [None]
  - DRUG DOSE OMISSION [None]
  - ABASIA [None]
  - PAIN [None]
